FAERS Safety Report 13422292 (Version 1)
Quarter: 2017Q2

REPORT INFORMATION
  Report Type: Spontaneous
  Country: US (occurrence: US)
  Receive Date: 20170410
  Receipt Date: 20170410
  Transmission Date: 20170830
  Serious: Yes (Hospitalization, Other)
  Sender: FDA-Public Use
  Company Number: US-DRREDDYS-USA/USA/17/0088461

PATIENT
  Age: 31 Year
  Sex: Female
  Weight: 59 kg

DRUGS (12)
  1. SIROLIMUS. [Suspect]
     Active Substance: SIROLIMUS
     Indication: PROPHYLAXIS
     Dosage: 0.4 MG
     Route: 065
  2. SIROLIMUS. [Interacting]
     Active Substance: SIROLIMUS
     Dosage: 16 TO 18 MG
     Route: 065
  3. VORICONAZOLE. [Interacting]
     Active Substance: VORICONAZOLE
     Indication: ANTIFUNGAL PROPHYLAXIS
     Route: 048
  4. METHYLPREDNISOLONE. [Concomitant]
     Active Substance: METHYLPREDNISOLONE
     Indication: PRODUCT USED FOR UNKNOWN INDICATION
     Route: 065
  5. FLUDARABINE [Concomitant]
     Active Substance: FLUDARABINE PHOSPHATE
     Indication: PRODUCT USED FOR UNKNOWN INDICATION
     Route: 065
  6. CYCLOPHOSPHAMIDE. [Concomitant]
     Active Substance: CYCLOPHOSPHAMIDE
     Indication: PRODUCT USED FOR UNKNOWN INDICATION
     Route: 065
  7. RIFAMPIN. [Interacting]
     Active Substance: RIFAMPIN
     Indication: PRODUCT USED FOR UNKNOWN INDICATION
     Route: 042
  8. SIROLIMUS. [Interacting]
     Active Substance: SIROLIMUS
     Dosage: 12 MG LOADING DOSE
     Route: 065
  9. SIROLIMUS. [Interacting]
     Active Substance: SIROLIMUS
     Dosage: 4 MILLIGRAM
     Route: 065
  10. MYCOPHENOLATE [Suspect]
     Active Substance: MYCOPHENOLIC ACID
     Indication: IMMUNOSUPPRESSION
     Route: 065
  11. EQUINE ANTI-THYMOCYTE GLOBULIN [Concomitant]
     Indication: PRODUCT USED FOR UNKNOWN INDICATION
     Route: 065
  12. VORICONAZOLE. [Interacting]
     Active Substance: VORICONAZOLE
     Route: 065

REACTIONS (10)
  - Drug interaction [Unknown]
  - Human herpesvirus 6 infection [Recovering/Resolving]
  - Graft versus host disease in skin [Not Recovered/Not Resolved]
  - BK virus infection [Recovering/Resolving]
  - Meningitis staphylococcal [Recovered/Resolved]
  - Otitis externa [Recovering/Resolving]
  - Staphylococcal sepsis [Recovering/Resolving]
  - Immunosuppressant drug level decreased [Unknown]
  - Viraemia [Recovering/Resolving]
  - Cystitis viral [Recovering/Resolving]
